FAERS Safety Report 10365096 (Version 1)
Quarter: 2014Q3

REPORT INFORMATION
  Report Type: Spontaneous
  Country: US (occurrence: US)
  Receive Date: 20140806
  Receipt Date: 20140806
  Transmission Date: 20150326
  Serious: Yes (Other)
  Sender: FDA-Public Use
  Company Number: US-RB PHARMACEUTICALS LIMITED-RB-70207-2014

PATIENT

DRUGS (1)
  1. SUBOXONE [Suspect]
     Active Substance: BUPRENORPHINE HYDROCHLORIDE\NALOXONE HYDROCHLORIDE
     Indication: PRODUCT USED FOR UNKNOWN INDICATION
     Dosage: UNK
     Route: 065

REACTIONS (4)
  - Umbilical cord abnormality [Recovered/Resolved with Sequelae]
  - High risk pregnancy [Recovered/Resolved]
  - Foetal growth restriction [Not Recovered/Not Resolved]
  - Maternal exposure during pregnancy [Recovered/Resolved]
